FAERS Safety Report 19977757 (Version 2)
Quarter: 2022Q3

REPORT INFORMATION
  Report Type: Report from Study
  Country: US (occurrence: US)
  Receive Date: 20211020
  Receipt Date: 20220804
  Transmission Date: 20221027
  Serious: Yes (Hospitalization, Other)
  Sender: FDA-Public Use
  Company Number: US-NOVARTISPH-NVSC2021US239265

PATIENT
  Age: 31 Year
  Sex: Male
  Weight: 92 kg

DRUGS (11)
  1. TOBI PODHALER [Suspect]
     Active Substance: TOBRAMYCIN
     Indication: Cystic fibrosis
     Dosage: 112 MG, BID
     Route: 042
     Dates: start: 2013, end: 20211007
  2. TOBRAMYCIN [Suspect]
     Active Substance: TOBRAMYCIN
     Indication: Cystic fibrosis
     Dosage: 800 MG, QH
     Route: 042
     Dates: start: 20211007
  3. AZITHROMYCIN ANHYDROUS [Suspect]
     Active Substance: AZITHROMYCIN ANHYDROUS
     Indication: Cystic fibrosis
     Dosage: 250 MG, QD
     Route: 065
     Dates: start: 2011, end: 20211007
  4. CEFTAZIDIME [Suspect]
     Active Substance: CEFTAZIDIME
     Indication: Product used for unknown indication
     Dosage: 3.5 G
     Route: 065
     Dates: start: 20211007
  5. LACTOBACILLUS ACIDOPHILUS [Suspect]
     Active Substance: LACTOBACILLUS ACIDOPHILUS
     Indication: Product used for unknown indication
     Dosage: 2 DF, TID
     Route: 065
     Dates: start: 20211007
  6. DULERA [Suspect]
     Active Substance: FORMOTEROL FUMARATE DIHYDRATE\MOMETASONE FUROATE
     Indication: Product used for unknown indication
     Dosage: 2 DF, BID
     Route: 065
     Dates: start: 20211007
  7. ALBUTEROL [Suspect]
     Active Substance: ALBUTEROL
     Indication: Cystic fibrosis
     Dosage: 2 DF, BID
     Route: 065
     Dates: start: 2004, end: 20211007
  8. ALBUTEROL [Suspect]
     Active Substance: ALBUTEROL
     Dosage: 2.5 MG, QD
     Route: 065
     Dates: start: 2011, end: 20211007
  9. SODIUM CHLORIDE [Suspect]
     Active Substance: SODIUM CHLORIDE
     Indication: Cystic fibrosis
     Dosage: 4 ML, BID
     Route: 065
     Dates: start: 2011, end: 20211007
  10. ADVAIR HFA [Suspect]
     Active Substance: FLUTICASONE PROPIONATE\SALMETEROL XINAFOATE
     Indication: Asthma
     Dosage: 1 DF, BID
     Route: 065
     Dates: start: 20210928, end: 20211007
  11. SINGULAIR [Suspect]
     Active Substance: MONTELUKAST SODIUM
     Indication: Chronic sinusitis
     Dosage: 10 MG, QHS
     Route: 065
     Dates: start: 2018, end: 20211007

REACTIONS (1)
  - Infective pulmonary exacerbation of cystic fibrosis [Not Recovered/Not Resolved]

NARRATIVE: CASE EVENT DATE: 20211007
